FAERS Safety Report 10227248 (Version 1)
Quarter: 2014Q2

REPORT INFORMATION
  Report Type: Spontaneous
  Country: US (occurrence: US)
  Receive Date: 20140610
  Receipt Date: 20140610
  Transmission Date: 20141212
  Serious: No
  Sender: FDA-Public Use
  Company Number: US-JNJFOC-20140517375

PATIENT
  Age: 46 Year
  Sex: Female
  Weight: 28.12 kg

DRUGS (4)
  1. DURAGESIC [Suspect]
     Indication: CANCER PAIN
     Route: 062
     Dates: start: 2013
  2. DIAZEPAM [Concomitant]
     Route: 048
  3. LEXAPRO [Concomitant]
     Route: 048
  4. OXYCODONE [Concomitant]
     Indication: PAIN
     Route: 048

REACTIONS (6)
  - Wrong technique in drug usage process [Unknown]
  - Wrong technique in drug usage process [Unknown]
  - Wrong technique in drug usage process [Unknown]
  - Poor quality drug administered [Unknown]
  - Product quality issue [Unknown]
  - Product adhesion issue [Unknown]
